FAERS Safety Report 8660281 (Version 4)
Quarter: 2012Q4

REPORT INFORMATION
  Report Type: 
  Country: DE (occurrence: DE)
  Receive Date: 20120711
  Receipt Date: 20120917
  Transmission Date: 20130627
  Serious: Yes (Hospitalization)
  Sender: FDA-Public Use
  Company Number: DE-GLAXOSMITHKLINE-D0069639A

PATIENT
  Age: 52 None
  Sex: Male

DRUGS (5)
  1. AVANDAMET [Suspect]
     Indication: DIABETES MELLITUS
     Dosage: 1002MG Twice per day
     Route: 048
     Dates: start: 20080313, end: 20101117
  2. RAMIPRIL [Concomitant]
     Dosage: 5MG Per day
     Route: 065
  3. SULPIRID [Concomitant]
     Dosage: 150MG Three times per day
     Route: 065
  4. MIRTAZAPINE [Concomitant]
     Dosage: 30MG Per day
     Route: 065
  5. TREVILOR [Concomitant]
     Dosage: 150MG Per day
     Route: 065

REACTIONS (13)
  - Dyspnoea [Recovered/Resolved]
  - Cardiac disorder [Recovered/Resolved]
  - Palpitations [Recovered/Resolved]
  - Iron deficiency anaemia [Recovered/Resolved]
  - Blood glucose abnormal [Recovered/Resolved]
  - Nervousness [Recovered/Resolved]
  - Asthenia [Recovered/Resolved]
  - Weight increased [Not Recovered/Not Resolved]
  - Hepatic cirrhosis [Unknown]
  - Hepatic fibrosis [Unknown]
  - Pancreatitis chronic [Unknown]
  - Bile duct stone [Unknown]
  - Hypersensitivity [Recovered/Resolved]
